FAERS Safety Report 26086922 (Version 1)
Quarter: 2025Q4

REPORT INFORMATION
  Report Type: Spontaneous
  Country: JP (occurrence: JP)
  Receive Date: 20251125
  Receipt Date: 20251125
  Transmission Date: 20260117
  Serious: Yes (Hospitalization, Other)
  Sender: UCB
  Company Number: JP-UCBJ-CD202515491UCBPHAPROD

PATIENT
  Age: 66 Year

DRUGS (3)
  1. RYSTIGGO [Suspect]
     Active Substance: ROZANOLIXIZUMAB-NOLI
     Indication: Myasthenia gravis
     Dosage: WEEKLY (QW)
  2. PREDNISOLONE [Concomitant]
     Active Substance: PREDNISOLONE
     Indication: Myasthenia gravis
     Dosage: UNK
  3. CYCLOSPORINE [Concomitant]
     Active Substance: CYCLOSPORINE
     Dosage: UNK

REACTIONS (7)
  - Blood immunoglobulin G decreased [Unknown]
  - Colon cancer [Unknown]
  - Femur fracture [Unknown]
  - Pelvic fracture [Unknown]
  - Oedema [Unknown]
  - Drug ineffective [Unknown]
  - Off label use [Unknown]
